FAERS Safety Report 14708003 (Version 4)
Quarter: 2018Q4

REPORT INFORMATION
  Report Type: Spontaneous
  Country: US (occurrence: US)
  Receive Date: 20180403
  Receipt Date: 20181030
  Transmission Date: 20190204
  Serious: Yes (Other)
  Sender: FDA-Public Use
  Company Number: US-PFIZER INC-2018134182

PATIENT
  Age: 78 Year
  Sex: Female
  Weight: 75.3 kg

DRUGS (2)
  1. IBRANCE [Suspect]
     Active Substance: PALBOCICLIB
     Indication: BREAST CANCER METASTATIC
     Dosage: 100 MG, CYCLIC (FOR 21 DAYS ON AND 1 WEEK OFF)
     Route: 048
     Dates: start: 201711
  2. FASLODEX [Concomitant]
     Active Substance: FULVESTRANT
     Indication: BREAST CANCER
     Dosage: 1000 MG, MONTHLY [500MG 2 SHOTS INTRAMUSCULAR INJECTION ONCE A MONTH]
     Route: 030

REACTIONS (9)
  - Body height decreased [Unknown]
  - Malaise [Unknown]
  - Nausea [Recovering/Resolving]
  - Insomnia [Unknown]
  - Eye disorder [Not Recovered/Not Resolved]
  - Constipation [Unknown]
  - Emotional disorder [Recovering/Resolving]
  - Alopecia [Unknown]
  - Abdominal pain upper [Recovering/Resolving]

NARRATIVE: CASE EVENT DATE: 201711
